FAERS Safety Report 5325335-X (Version None)
Quarter: 2007Q2

REPORT INFORMATION
  Report Type: 
  Country: None (occurrence: None)
  Receive Date: 20070515
  Receipt Date: 20070509
  Transmission Date: 20071010
  Serious: Yes (Hospitalization)
  Sender: FDA-Public Use
  Company Number: US-BRACCO-BDI-009491

PATIENT
  Age: 29 Year
  Sex: Female

DRUGS (2)
  1. ISOVUE-128 [Suspect]
     Route: 015
     Dates: start: 20060830, end: 20060830
  2. ISOVUE-128 [Suspect]
     Route: 015
     Dates: start: 20060830, end: 20060830

REACTIONS (6)
  - ASCITES [None]
  - FALLOPIAN TUBE STENOSIS [None]
  - HYPERSENSITIVITY [None]
  - NAUSEA [None]
  - PELVIC PAIN [None]
  - VOMITING [None]
